FAERS Safety Report 5790228-0 (Version None)
Quarter: 2008Q2

REPORT INFORMATION
  Report Type: 
  Country: None (occurrence: None)
  Receive Date: 20080626
  Receipt Date: 20080501
  Transmission Date: 20081010
  Serious: No
  Sender: FDA-Public Use
  Company Number: A0706182A

PATIENT

DRUGS (1)
  1. ALLI [Suspect]
     Dates: start: 20070701

REACTIONS (5)
  - DRUG INEFFECTIVE [None]
  - EMOTIONAL DISTRESS [None]
  - STRESS [None]
  - SURGERY [None]
  - TOOTH EXTRACTION [None]
